FAERS Safety Report 4365971-0 (Version None)
Quarter: 2004Q2

REPORT INFORMATION
  Report Type: 
  Country: None (occurrence: None)
  Receive Date: 20040520
  Receipt Date: 20040507
  Transmission Date: 20050107
  Serious: Yes (Hospitalization)
  Sender: FDA-Public Use
  Company Number: SP-2004-001712

PATIENT
  Age: 60 Year
  Sex: Male

DRUGS (1)
  1. VOTUM 10 [Suspect]
     Indication: HYPERTENSION
     Dosage: 10 MG QD PO
     Route: 048
     Dates: start: 20040223, end: 20040224

REACTIONS (2)
  - ANGIONEUROTIC OEDEMA [None]
  - DIZZINESS [None]
